FAERS Safety Report 5638211-X (Version None)
Quarter: 2008Q1

REPORT INFORMATION
  Report Type: 
  Country: None (occurrence: None)
  Receive Date: 20080221
  Receipt Date: 20080212
  Transmission Date: 20080703
  Serious: Yes (Hospitalization)
  Sender: FDA-Public Use
  Company Number: 163-21880-08020391

PATIENT
  Age: 64 Year
  Sex: Male

DRUGS (3)
  1. REVLIMID [Suspect]
     Indication: MULTIPLE MYELOMA
     Dosage: 5 MG, DAILY, ORAL; 25 MG, 1 IN 1 D, ORAL
     Route: 048
     Dates: start: 20080124, end: 20080130
  2. REVLIMID [Suspect]
     Indication: MULTIPLE MYELOMA
     Dosage: 5 MG, DAILY, ORAL; 25 MG, 1 IN 1 D, ORAL
     Route: 048
     Dates: start: 20080212
  3. DECADRON [Concomitant]

REACTIONS (2)
  - EPISTAXIS [None]
  - HYPERSENSITIVITY [None]
